FAERS Safety Report 13778584 (Version 1)
Quarter: 2017Q3

REPORT INFORMATION
  Report Type: Spontaneous
  Country: US (occurrence: US)
  Receive Date: 20170721
  Receipt Date: 20170721
  Transmission Date: 20171127
  Serious: No
  Sender: FDA-Public Use
  Company Number: US-ARALEZ PHARMACEUTICALS R+D INC.-ARA-TP-US-2017-631

PATIENT
  Sex: Female
  Weight: 92.62 kg

DRUGS (6)
  1. TOPROL XL [Suspect]
     Active Substance: METOPROLOL SUCCINATE
     Indication: HYPERTENSION
     Route: 048
  2. TOPROL XL [Suspect]
     Active Substance: METOPROLOL SUCCINATE
     Indication: TACHYCARDIA
  3. METFORMIN [Concomitant]
     Active Substance: METFORMIN HYDROCHLORIDE
     Indication: TYPE 2 DIABETES MELLITUS
     Route: 048
  4. BYDUREON [Concomitant]
     Active Substance: EXENATIDE
     Indication: TYPE 2 DIABETES MELLITUS
     Route: 058
     Dates: start: 2017
  5. ONGLYZA [Concomitant]
     Active Substance: SAXAGLIPTIN HYDROCHLORIDE
     Indication: TYPE 2 DIABETES MELLITUS
     Route: 048
  6. GLYBURIDE. [Concomitant]
     Active Substance: GLYBURIDE
     Indication: TYPE 2 DIABETES MELLITUS
     Route: 048

REACTIONS (1)
  - Off label use [Unknown]
